FAERS Safety Report 7648674-6 (Version None)
Quarter: 2011Q3

REPORT INFORMATION
  Report Type: 
  Country: None (occurrence: None)
  Receive Date: 20110801
  Receipt Date: 20110721
  Transmission Date: 20111222
  Serious: Yes (Other)
  Sender: FDA-Public Use
  Company Number: PHHY2011CH66027

PATIENT
  Sex: Female

DRUGS (4)
  1. PANTOPRAZOLE [Concomitant]
     Route: 048
  2. ATORVASTATIN CALCIUM [Concomitant]
     Route: 048
  3. FEMARA [Suspect]
     Dosage: UNK UKN, UNK
     Route: 048
     Dates: start: 20091001
  4. CALCIMAGON-D3 [Concomitant]
     Route: 048

REACTIONS (2)
  - VITREOUS DISORDER [None]
  - RETINAL DISORDER [None]
